FAERS Safety Report 22611817 (Version 1)
Quarter: 2023Q2

REPORT INFORMATION
  Report Type: Spontaneous
  Country: FR (occurrence: FR)
  Receive Date: 20230616
  Receipt Date: 20230616
  Transmission Date: 20230721
  Serious: Yes (Other)
  Sender: FDA-Public Use
  Company Number: None

PATIENT

DRUGS (2)
  1. BUPRENORPHINE [Suspect]
     Active Substance: BUPRENORPHINE
     Indication: Product used for unknown indication
     Dosage: UNK (12 MG PER DAY + 2 TO 4 MG SOME EVENINGS (SNIFF))
     Route: 060
     Dates: start: 1999
  2. BUPRENORPHINE [Suspect]
     Active Substance: BUPRENORPHINE
     Dosage: UNK (12 MG PER DAY + 2 TO 4 MG SOME EVENINGS (SNIFF))
     Route: 045
     Dates: start: 1999

REACTIONS (3)
  - Product use issue [Not Recovered/Not Resolved]
  - Product use in unapproved indication [Not Recovered/Not Resolved]
  - Drug use disorder [Not Recovered/Not Resolved]
